FAERS Safety Report 8246738-X (Version None)
Quarter: 2012Q1

REPORT INFORMATION
  Report Type: 
  Country: None (occurrence: None)
  Receive Date: 20120330
  Receipt Date: 20120327
  Transmission Date: 20120608
  Serious: Yes (Other)
  Sender: FDA-Public Use
  Company Number: US-PFIZER INC-2012069024

PATIENT
  Sex: Female
  Weight: 46.712 kg

DRUGS (1)
  1. PREMARIN [Suspect]
     Indication: MENORRHAGIA
     Dosage: UNK (10 TABLETS ORALLY TOGETHER)
     Route: 048
     Dates: start: 20120315

REACTIONS (3)
  - HAEMORRHAGE [None]
  - EMOTIONAL DISORDER [None]
  - CIRCUMSTANCE OR INFORMATION CAPABLE OF LEADING TO MEDICATION ERROR [None]
